FAERS Safety Report 17955138 (Version 1)
Quarter: 2020Q2

REPORT INFORMATION
  Report Type: Spontaneous
  Country: US (occurrence: US)
  Receive Date: 20200626
  Receipt Date: 20200626
  Transmission Date: 20200714
  Serious: Yes (Disabling)
  Sender: FDA-Public Use
  Company Number: None

PATIENT
  Age: 17 Year
  Sex: Male
  Weight: 60 kg

DRUGS (14)
  1. MORPHINE 2MG IV PRN Q2H [Concomitant]
     Dates: start: 20200623
  2. ENOXAPARIN 40MG SQ [Concomitant]
     Dates: start: 20200624
  3. LORAZEPAM 2MG Q4HPRN [Concomitant]
     Dates: start: 20200624
  4. MELATONIN 3MG HS [Concomitant]
     Dates: start: 20200623
  5. REMDESIVIR. [Suspect]
     Active Substance: REMDESIVIR
     Indication: COVID-19
     Route: 040
  6. MORPHINE DRIP 0.025MG/HOUR [Concomitant]
     Dates: start: 20200626
  7. METRONIDAZOLE 500MG IV Q 8 HRS [Concomitant]
     Dates: start: 20200625
  8. AZITHROMYCIN ORAL [Concomitant]
     Dates: start: 20200618
  9. DEXAMETHASONE 6MG IV QD [Concomitant]
     Dates: start: 20200623
  10. DEXMEDETOMIDINE IV DRIP [Concomitant]
     Dates: start: 20200625
  11. FAMOTIDINE 20 MG IV QD [Concomitant]
     Dates: start: 20200623
  12. ONDANSETRON 4MG IV PRN Q8HR [Concomitant]
     Dates: start: 20200622
  13. INSULIN DRIP [Concomitant]
     Dates: start: 20200624
  14. CEFEPIME 2G IV Q 12H [Concomitant]
     Dates: start: 20200625

REACTIONS (3)
  - Pneumatosis intestinalis [None]
  - Respiratory failure [None]
  - Appendicitis [None]

NARRATIVE: CASE EVENT DATE: 20200626
